FAERS Safety Report 15899068 (Version 1)
Quarter: 2019Q1

REPORT INFORMATION
  Report Type: Spontaneous
  Country: FR (occurrence: FR)
  Receive Date: 20190201
  Receipt Date: 20190201
  Transmission Date: 20190417
  Serious: Yes (Hospitalization, Other)
  Sender: FDA-Public Use
  Company Number: FR-GLAXOSMITHKLINE-FR2019015238

PATIENT
  Age: 67 Year
  Sex: Female
  Weight: 61 kg

DRUGS (1)
  1. MALARONE [Suspect]
     Active Substance: ATOVAQUONE\PROGUANIL HYDROCHLORIDE
     Indication: MALARIA PROPHYLAXIS
     Dosage: 1 DF, QD
     Route: 048
     Dates: start: 20181111, end: 20181201

REACTIONS (7)
  - Atrial fibrillation [Recovered/Resolved]
  - Myalgia [Recovering/Resolving]
  - Asthenia [Recovering/Resolving]
  - Pyrexia [Recovered/Resolved]
  - Diarrhoea [Recovered/Resolved]
  - Cholestasis [Recovering/Resolving]
  - Inflammatory marker increased [Recovered/Resolved]

NARRATIVE: CASE EVENT DATE: 201811
